FAERS Safety Report 5895105-2 (Version None)
Quarter: 2008Q3

REPORT INFORMATION
  Report Type: 
  Country: None (occurrence: None)
  Receive Date: 20080924
  Receipt Date: 20080911
  Transmission Date: 20090109
  Serious: Yes (Other)
  Sender: FDA-Public Use
  Company Number: US-PFIZER INC-2008076935

PATIENT
  Sex: Female
  Weight: 86.363 kg

DRUGS (3)
  1. LYRICA [Suspect]
     Indication: NEUROPATHY PERIPHERAL
     Dates: start: 20080201
  2. SYNTHROID [Concomitant]
  3. CYMBALTA [Concomitant]

REACTIONS (2)
  - CATARACT [None]
  - INSOMNIA [None]
